FAERS Safety Report 4943397-6 (Version None)
Quarter: 2006Q1

REPORT INFORMATION
  Report Type: 
  Country: None (occurrence: None)
  Receive Date: 20060313
  Receipt Date: 20060313
  Transmission Date: 20060701
  Serious: Yes (Hospitalization)
  Sender: FDA-Public Use
  Company Number: None

PATIENT
  Age: 79 Year
  Sex: Male

DRUGS (2)
  1. SILDENAFIL [Suspect]
     Indication: CARDIAC FAILURE CONGESTIVE
     Dosage: 25 MG PO TID
     Route: 048
     Dates: start: 20040617
  2. SILDENAFIL [Suspect]
     Indication: PULMONARY HYPERTENSION
     Dosage: 25 MG PO TID
     Route: 048
     Dates: start: 20040617

REACTIONS (7)
  - CEREBRAL HAEMORRHAGE [None]
  - FRACTURE [None]
  - ORTHOSTATIC HYPOTENSION [None]
  - SYNCOPE [None]
  - SYNCOPE VASOVAGAL [None]
  - THERAPY REGIMEN CHANGED [None]
  - VIRAL INFECTION [None]
